FAERS Safety Report 19606650 (Version 1)
Quarter: 2021Q3

REPORT INFORMATION
  Report Type: Report from Study
  Country: DO (occurrence: DO)
  Receive Date: 20210725
  Receipt Date: 20210725
  Transmission Date: 20211014
  Serious: Yes (Other)
  Sender: FDA-Public Use
  Company Number: NVSC2021DO162808

PATIENT
  Sex: Female
  Weight: 67.57 kg

DRUGS (3)
  1. SALBUTAMOL [Concomitant]
     Active Substance: ALBUTEROL
     Indication: PRODUCT USED FOR UNKNOWN INDICATION
     Dosage: UNK, QD, (EVERY 24 HOURS)
     Route: 055
  2. IRBESARTAN. [Suspect]
     Active Substance: IRBESARTAN
     Indication: PRODUCT USED FOR UNKNOWN INDICATION
     Dosage: 300 MG, QD (2 YRS AGO APPROXIMATELY)
     Route: 065
  3. INSULIN [Concomitant]
     Active Substance: INSULIN NOS
     Indication: PRODUCT USED FOR UNKNOWN INDICATION
     Dosage: UNK UNK, BID, 70/30, (TWICE A DAY/2 HOURS AFTER THE BREAKFAST AND 2 HOURS AGO THE DINNER)
     Route: 065

REACTIONS (3)
  - Cough [Unknown]
  - Asthmatic crisis [Unknown]
  - Dyspnoea [Unknown]
